FAERS Safety Report 23183696 (Version 1)
Quarter: 2023Q4

REPORT INFORMATION
  Report Type: Spontaneous
  Country: None (occurrence: US)
  Receive Date: 20231114
  Receipt Date: 20231114
  Transmission Date: 20240110
  Serious: Yes (Other)
  Sender: FDA-Public Use
  Company Number: US-Provepharm-2148250

PATIENT
  Age: 14 Year
  Sex: Female

DRUGS (1)
  1. PROVAYBLUE [Suspect]
     Active Substance: METHYLENE BLUE

REACTIONS (1)
  - Bradycardia [None]
